FAERS Safety Report 5515070-7 (Version None)
Quarter: 2007Q4

REPORT INFORMATION
  Report Type: 
  Country: None (occurrence: None)
  Receive Date: 20071113
  Receipt Date: 20070104
  Transmission Date: 20080405
  Serious: No
  Sender: FDA-Public Use
  Company Number: A0631633A

PATIENT
  Age: 92 Year
  Sex: Female

DRUGS (5)
  1. COREG [Suspect]
     Dosage: 3.125MG TWICE PER DAY
     Route: 048
     Dates: start: 20061211, end: 20061211
  2. NEURONTIN [Concomitant]
  3. VERAPAMIL [Concomitant]
  4. ASPIRIN [Concomitant]
  5. PERCOCET [Concomitant]

REACTIONS (4)
  - HYPERSENSITIVITY [None]
  - NECK PAIN [None]
  - PAIN IN EXTREMITY [None]
  - PAIN IN JAW [None]
